FAERS Safety Report 7672735-9 (Version None)
Quarter: 2011Q3

REPORT INFORMATION
  Report Type: 
  Country: None (occurrence: None)
  Receive Date: 20110804
  Receipt Date: 20110720
  Transmission Date: 20111222
  Serious: Yes (Other)
  Sender: FDA-Public Use
  Company Number: 2011PV000043

PATIENT
  Age: 76 Year
  Sex: Male

DRUGS (4)
  1. DEPOCYT [Suspect]
     Indication: CENTRAL NERVOUS SYSTEM LYMPHOMA
     Dosage: 50 MG; QOW; INTH
  2. TEMOZOLOMIDE [Suspect]
     Indication: CENTRAL NERVOUS SYSTEM LYMPHOMA
     Dosage: 100 MG/M**2
  3. DEXAMETHASONE [Suspect]
  4. METHOTREXATE [Suspect]
     Indication: CENTRAL NERVOUS SYSTEM LYMPHOMA
     Dosage: 3000 MG/M**2;    ;IV
     Route: 042

REACTIONS (3)
  - DIABETES MELLITUS [None]
  - RENAL FAILURE [None]
  - IATROGENIC INJURY [None]
